FAERS Safety Report 20024990 (Version 1)
Quarter: 2021Q4

REPORT INFORMATION
  Report Type: Spontaneous
  Country: PT (occurrence: PT)
  Receive Date: 20211102
  Receipt Date: 20211102
  Transmission Date: 20220303
  Serious: Yes (Other)
  Sender: FDA-Public Use
  Company Number: PT-ROCHE-2879290

PATIENT
  Age: 21 Day
  Sex: Female

DRUGS (1)
  1. VALGANCICLOVIR [Suspect]
     Active Substance: VALGANCICLOVIR
     Indication: Cytomegalovirus infection
     Dosage: 16 MILLIGRAM/KILOGRAM
     Route: 048

REACTIONS (3)
  - Neutropenia neonatal [Recovered/Resolved]
  - Leukopenia neonatal [Recovered/Resolved]
  - Off label use [Unknown]
